FAERS Safety Report 13882851 (Version 1)
Quarter: 2017Q3

REPORT INFORMATION
  Report Type: Spontaneous
  Country: US (occurrence: US)
  Receive Date: 20170818
  Receipt Date: 20170818
  Transmission Date: 20171127
  Serious: No
  Sender: FDA-Public Use
  Company Number: US-BRISTOL-MYERS SQUIBB COMPANY-BMS-2017-074615

PATIENT

DRUGS (1)
  1. ABILIFY [Suspect]
     Active Substance: ARIPIPRAZOLE
     Indication: PRODUCT USED FOR UNKNOWN INDICATION
     Dosage: UNK
     Route: 065
     Dates: start: 20031215, end: 20080611

REACTIONS (9)
  - Quality of life decreased [Unknown]
  - Economic problem [Unknown]
  - Anxiety [Unknown]
  - Condition aggravated [Unknown]
  - Stress [Unknown]
  - Divorced [Unknown]
  - Emotional distress [Unknown]
  - Gambling [Unknown]
  - Hypersexuality [Unknown]
